FAERS Safety Report 19085373 (Version 3)
Quarter: 2022Q1

REPORT INFORMATION
  Report Type: Spontaneous
  Country: US (occurrence: US)
  Receive Date: 20210401
  Receipt Date: 20220201
  Transmission Date: 20220423
  Serious: No
  Sender: FDA-Public Use
  Company Number: US-BIOMARINAP-US-2021-135669

PATIENT
  Age: 24 Year
  Sex: Female

DRUGS (4)
  1. ALDURAZYME [Suspect]
     Active Substance: LARONIDASE
     Indication: Mucopolysaccharidosis I
     Dosage: 26.1 MILLIGRAM, QW
     Route: 041
     Dates: start: 20030619
  2. ALDURAZYME [Suspect]
     Active Substance: LARONIDASE
     Dosage: 26.1 MILLIGRAM, QW
     Route: 041
     Dates: start: 20200326
  3. COVID-19 VACCINE NOS [Suspect]
     Active Substance: COVID-19 VACCINE NOS
     Indication: Product used for unknown indication
     Route: 065
  4. HEPARIN [Concomitant]
     Active Substance: HEPARIN SODIUM
     Indication: Product used for unknown indication

REACTIONS (2)
  - Influenza [Unknown]
  - Product preparation error [Unknown]

NARRATIVE: CASE EVENT DATE: 20211116
